FAERS Safety Report 7030396-6 (Version None)
Quarter: 2010Q4

REPORT INFORMATION
  Report Type: 
  Country: None (occurrence: None)
  Receive Date: 20101006
  Receipt Date: 20100927
  Transmission Date: 20110411
  Serious: Yes (Hospitalization)
  Sender: FDA-Public Use
  Company Number: US-ASTRAZENECA-2008UW21949

PATIENT
  Age: 855 Month
  Sex: Female

DRUGS (2)
  1. ARIMIDEX [Suspect]
     Route: 048
     Dates: start: 20080306
  2. PAXIL [Concomitant]
     Route: 048

REACTIONS (10)
  - BACK PAIN [None]
  - DRUG INEFFECTIVE [None]
  - FEELING ABNORMAL [None]
  - GAIT DISTURBANCE [None]
  - INTERVERTEBRAL DISC PROTRUSION [None]
  - MALAISE [None]
  - MYALGIA [None]
  - PAIN IN EXTREMITY [None]
  - SCIATICA [None]
  - TREMOR [None]
